FAERS Safety Report 9846114 (Version 1)
Quarter: 2014Q1

REPORT INFORMATION
  Report Type: Spontaneous
  Country: US (occurrence: US)
  Receive Date: 20140127
  Receipt Date: 20140127
  Transmission Date: 20141002
  Serious: Yes (Hospitalization, Other)
  Sender: FDA-Public Use
  Company Number: US-ELI_LILLY_AND_COMPANY-US201401005675

PATIENT
  Sex: Female

DRUGS (10)
  1. HUMALOG LISPRO [Suspect]
     Indication: TYPE 2 DIABETES MELLITUS
     Route: 065
  2. HUMALOG LISPRO [Suspect]
     Indication: TYPE 2 DIABETES MELLITUS
     Dosage: 10 U, TID
     Route: 065
     Dates: start: 201311
  3. LANTUS [Concomitant]
     Route: 065
  4. VENLAFAXINE [Concomitant]
     Dosage: 75 MG, BID
     Route: 065
  5. POTASSIUM [Concomitant]
     Dosage: 10 MEQ, BID
  6. SIMVASTATIN [Concomitant]
     Dosage: 40 MG, UNK
  7. FUROSEMIDE [Concomitant]
     Dosage: 1 DF, BID
  8. RANEXA [Concomitant]
     Dosage: 500 MG, UNK
  9. BABY ASPIRIN [Concomitant]
     Dosage: UNK, QD
  10. CARVEDILOL [Concomitant]

REACTIONS (3)
  - Sepsis [Unknown]
  - Pulmonary hypertension [Not Recovered/Not Resolved]
  - Bronchitis [Unknown]
